FAERS Safety Report 8571549-5 (Version None)
Quarter: 2012Q3

REPORT INFORMATION
  Report Type: 
  Country: None (occurrence: None)
  Receive Date: 20120806
  Receipt Date: 20120730
  Transmission Date: 20120928
  Serious: Yes (Other)
  Sender: FDA-Public Use
  Company Number: PHHY2012CH035580

PATIENT
  Sex: Male

DRUGS (6)
  1. IMATINIB MESYLATE [Suspect]
     Indication: GASTROINTESTINAL STROMAL TUMOUR
     Dosage: 400 MG, DAILY
     Dates: start: 20110629
  2. CANDESARTAN CILEXETIL [Concomitant]
     Indication: CARDIOVASCULAR DISORDER
     Dosage: 4 MG, DAILY
  3. ACETAMINOPHEN [Concomitant]
  4. PANTOPRAZOLE [Concomitant]
     Dosage: 20 MG, DAILY
  5. CLORAZEPATE DIPOTASSIUM [Concomitant]
     Dosage: 20 MG, HALF TABLET PER DAY
  6. METAMUCIL-2 [Concomitant]

REACTIONS (12)
  - FEELING HOT [None]
  - BALANCE DISORDER [None]
  - ATAXIA [None]
  - POLYNEUROPATHY [None]
  - PAIN [None]
  - AREFLEXIA [None]
  - DYSAESTHESIA [None]
  - PARANEOPLASTIC SYNDROME [None]
  - HYPOAESTHESIA [None]
  - HYPOREFLEXIA [None]
  - PARAESTHESIA [None]
  - SENSORY DISTURBANCE [None]
